FAERS Safety Report 4902041-4 (Version None)
Quarter: 2006Q1

REPORT INFORMATION
  Report Type: 
  Country: None (occurrence: None)
  Receive Date: 20060202
  Receipt Date: 20060120
  Transmission Date: 20060701
  Serious: Yes (Hospitalization, Other)
  Sender: FDA-Public Use
  Company Number: KII-2006-0020897

PATIENT
  Age: 46 Year
  Sex: Female

DRUGS (7)
  1. OXYCONTIN [Suspect]
     Indication: PAIN
  2. OXYCODONE HYDROCHLORIDE 9SIMILAR TO NDA 20-553)(OXYCODONE HYDROCHLORID [Suspect]
     Indication: DRUG USE FOR UNKNOWN INDICATION
  3. ACETAMINOPHEN AND OXYCODONE HCL [Suspect]
     Indication: PAIN
  4. ACETAMINOPHEN AND HYDROCODONE BITARTRATE [Suspect]
     Indication: PAIN
  5. ANTABUSE [Suspect]
     Indication: DRUG USE FOR UNKNOWN INDICATION
  6. MARIJUANA(CANNABIS) [Suspect]
     Indication: INTENTIONAL DRUG MISUSE
  7. TRAZODONE HCL [Suspect]
     Indication: DRUG USE FOR UNKNOWN INDICATION

REACTIONS (24)
  - AGITATION [None]
  - ASPARTATE AMINOTRANSFERASE INCREASED [None]
  - BILIRUBIN CONJUGATED INCREASED [None]
  - BLOOD ALBUMIN DECREASED [None]
  - BLOOD ALKALINE PHOSPHATASE DECREASED [None]
  - BLOOD BILIRUBIN INCREASED [None]
  - BLOOD SODIUM INCREASED [None]
  - BOWEL SOUNDS ABNORMAL [None]
  - COAGULOPATHY [None]
  - DEPRESSED LEVEL OF CONSCIOUSNESS [None]
  - FAECAL INCONTINENCE [None]
  - FOETAL HEART RATE INCREASED [None]
  - HAEMOGLOBIN DECREASED [None]
  - HYPERAMMONAEMIA [None]
  - HYPERTENSION [None]
  - HYPOKALAEMIA [None]
  - LETHARGY [None]
  - PLATELET COUNT DECREASED [None]
  - PNEUMOTHORAX [None]
  - PO2 DECREASED [None]
  - POLYSUBSTANCE ABUSE [None]
  - RESPIRATORY RATE INCREASED [None]
  - TREMOR [None]
  - URINARY INCONTINENCE [None]
